FAERS Safety Report 6040821-5 (Version None)
Quarter: 2009Q1

REPORT INFORMATION
  Report Type: 
  Country: None (occurrence: None)
  Receive Date: 20090116
  Receipt Date: 20080604
  Transmission Date: 20090719
  Serious: No
  Sender: FDA-Public Use
  Company Number: US-BRISTOL-MYERS SQUIBB COMPANY-14216444

PATIENT
  Age: 5 Decade
  Sex: Male
  Weight: 113 kg

DRUGS (4)
  1. ABILIFY [Suspect]
     Indication: SCHIZOAFFECTIVE DISORDER
     Dosage: REDUCED TO 2.5 MG AND THEN DISCONTINUED 1 WEEK AGO.
  2. XANAX [Concomitant]
  3. TRAZODONE HCL [Concomitant]
  4. LAMICTAL [Concomitant]

REACTIONS (2)
  - ANXIETY [None]
  - DYSPHAGIA [None]
